FAERS Safety Report 17471530 (Version 1)
Quarter: 2020Q1

REPORT INFORMATION
  Report Type: Report from Study
  Country: US (occurrence: US)
  Receive Date: 20200228
  Receipt Date: 20200228
  Transmission Date: 20200409
  Serious: Yes (Death)
  Sender: FDA-Public Use
  Company Number: US-ROCHE-2555463

PATIENT
  Sex: Female

DRUGS (3)
  1. AVASTIN [Suspect]
     Active Substance: BEVACIZUMAB
     Indication: ENDOMETRIAL CANCER
     Dosage: NO
     Route: 065
     Dates: start: 20191119
  2. AVASTIN [Suspect]
     Active Substance: BEVACIZUMAB
     Indication: OESTROGEN RECEPTOR ASSAY POSITIVE
  3. AVASTIN [Suspect]
     Active Substance: BEVACIZUMAB
     Indication: MALIGNANT NEOPLASM OF UNKNOWN PRIMARY SITE

REACTIONS (3)
  - Neoplasm malignant [Fatal]
  - Off label use [Unknown]
  - Intentional product use issue [Unknown]
